FAERS Safety Report 5713254-6 (Version None)
Quarter: 2008Q2

REPORT INFORMATION
  Report Type: 
  Country: None (occurrence: None)
  Receive Date: 20080422
  Receipt Date: 20080410
  Transmission Date: 20081010
  Serious: Yes (Other)
  Sender: FDA-Public Use
  Company Number: US-PFIZER INC-2008016674

PATIENT
  Sex: Male
  Weight: 123.8 kg

DRUGS (2)
  1. GEODON [Suspect]
     Indication: BIPOLAR DISORDER
     Route: 048
  2. DEPAKOTE [Suspect]
     Route: 048

REACTIONS (3)
  - FEELING ABNORMAL [None]
  - PAPILLOEDEMA [None]
  - SOMNOLENCE [None]
